FAERS Safety Report 6752632-3 (Version None)
Quarter: 2010Q2

REPORT INFORMATION
  Report Type: 
  Country: None (occurrence: None)
  Receive Date: 20100602
  Receipt Date: 20100521
  Transmission Date: 20101027
  Serious: Yes (Hospitalization)
  Sender: FDA-Public Use
  Company Number: DE-WATSON-2010-07118

PATIENT

DRUGS (9)
  1. METFORMIN HCL [Suspect]
     Indication: TYPE 2 DIABETES MELLITUS
     Dosage: 500 MG, DAILY
     Route: 048
     Dates: start: 20080701, end: 20100422
  2. CRESTOR [Suspect]
     Indication: HYPERLIPIDAEMIA
     Dosage: 10 MG, DAILY
     Route: 048
     Dates: start: 20091008, end: 20100423
  3. JANUMET [Suspect]
     Indication: TYPE 2 DIABETES MELLITUS
     Dosage: 1 DF, BID
     Route: 048
     Dates: start: 20090101, end: 20100423
  4. ACTOS [Suspect]
     Indication: TYPE 2 DIABETES MELLITUS
     Dosage: 15 MG, DAILY
     Route: 048
     Dates: start: 20090713, end: 20100423
  5. OMACOR [Suspect]
     Indication: HYPERTRIGLYCERIDAEMIA
     Dosage: 1000 MG, QID
     Route: 048
     Dates: start: 20080701, end: 20100423
  6. ALLOPURINOL [Suspect]
     Indication: HYPERURICAEMIA
     Dosage: 150 MG, DAILY
     Route: 048
     Dates: end: 20100423
  7. RASILEZ [Suspect]
     Indication: HYPERTENSION
     Dosage: 150 MG, DAILY
     Route: 048
     Dates: start: 20070101, end: 20100423
  8. RAMIPRIL [Concomitant]
     Indication: HYPERTENSION
     Dosage: 5 MG, DAILY
     Route: 048
     Dates: start: 20051001
  9. METOHEXAL SUCC [Concomitant]
     Indication: HYPERTENSION
     Dosage: 47 1/2 MG, DAILY
     Route: 048
     Dates: start: 20051001

REACTIONS (1)
  - LIVER INJURY [None]
